FAERS Safety Report 8965861 (Version 1)
Quarter: 2012Q4

REPORT INFORMATION
  Report Type: Spontaneous
  Country: US (occurrence: None)
  Receive Date: 20121206
  Receipt Date: 20121206
  Transmission Date: 20130627
  Serious: Yes (Hospitalization)
  Sender: FDA-Public Use
  Company Number: 091116-000039

PATIENT
  Sex: Female

DRUGS (4)
  1. MEANINGFUL BEAUTY ANTIOXIDANT DAY CREME SPF 20 [Suspect]
     Dosage: once daily dermal
     Dates: start: 20091029
  2. MEANINGFUL BEAUTY MAINTENANCE 1 SPF 20 [Suspect]
     Dosage: once daily dermal
     Dates: start: 20091029
  3. MEANINGFUL BEAUTY MAINTENANCE 1 SPF 20 [Suspect]
     Dosage: once daily dermal
     Dates: start: 20091029
  4. MB* SKIN BRIGHT. DECOLLETE + NECK TREAT SPF 15 [Suspect]
     Dosage: once daily dermal
     Dates: start: 20091029

REACTIONS (5)
  - Hypersensitivity [None]
  - Influenza like illness [None]
  - Application site pain [None]
  - Application site exfoliation [None]
  - Application site dryness [None]
